FAERS Safety Report 9765058 (Version 1)
Quarter: 2013Q4

REPORT INFORMATION
  Report Type: Spontaneous
  Country: US (occurrence: None)
  Receive Date: 20131213
  Receipt Date: 20131213
  Transmission Date: 20140711
  Serious: Yes (Other)
  Sender: FDA-Public Use
  Company Number: 2013SA032271

PATIENT
  Age: 42 Year
  Sex: Male

DRUGS (1)
  1. ICY HOT POWER GEL [Suspect]
     Indication: MUSCLE STRAIN
     Route: 061
     Dates: start: 20101010

REACTIONS (5)
  - Thermal burn [None]
  - Blister [None]
  - Pain [None]
  - Burns third degree [None]
  - Burns second degree [None]
